FAERS Safety Report 16085487 (Version 1)
Quarter: 2019Q1

REPORT INFORMATION
  Report Type: Spontaneous
  Country: NL (occurrence: NL)
  Receive Date: 20190318
  Receipt Date: 20190318
  Transmission Date: 20190418
  Serious: Yes (Death, Hospitalization, Other)
  Sender: FDA-Public Use
  Company Number: NL-PFIZER INC-2019115972

PATIENT
  Sex: Male
  Weight: 85 kg

DRUGS (1)
  1. AMIODARONE HCL [Suspect]
     Active Substance: AMIODARONE HYDROCHLORIDE
     Indication: ATRIAL FIBRILLATION
     Dosage: 200 MG, DAILY (1X PER DAY 1 TABLET)
     Route: 065
     Dates: start: 2017, end: 201810

REACTIONS (2)
  - Lung disorder [Fatal]
  - Hypoxia [Fatal]
